FAERS Safety Report 13820069 (Version 1)
Quarter: 2017Q3

REPORT INFORMATION
  Report Type: Report from Study
  Country: US (occurrence: US)
  Receive Date: 20170801
  Receipt Date: 20170801
  Transmission Date: 20171127
  Serious: Yes (Other)
  Sender: FDA-Public Use
  Company Number: US-AMGEN-USASL2017114410

PATIENT
  Sex: Male

DRUGS (1)
  1. REPATHA [Suspect]
     Active Substance: EVOLOCUMAB
     Indication: PRODUCT USED FOR UNKNOWN INDICATION
     Dosage: 420 MG, QMO
     Route: 065

REACTIONS (7)
  - Rash macular [Unknown]
  - Constipation [Unknown]
  - Back pain [Not Recovered/Not Resolved]
  - Rib fracture [Unknown]
  - High density lipoprotein abnormal [Unknown]
  - Intentional product misuse [Unknown]
  - Cough [Unknown]

NARRATIVE: CASE EVENT DATE: 2017
